FAERS Safety Report 8605788-1 (Version None)
Quarter: 2012Q3

REPORT INFORMATION
  Report Type: 
  Country: None (occurrence: None)
  Receive Date: 20120820
  Receipt Date: 20120815
  Transmission Date: 20120928
  Serious: Yes (Hospitalization)
  Sender: FDA-Public Use
  Company Number: NL-AMGEN-NLDSP2011062294

PATIENT
  Age: 77 Year
  Sex: Female
  Weight: 85 kg

DRUGS (3)
  1. DOCETAXEL [Concomitant]
  2. NEULASTA [Suspect]
     Indication: CHEMOTHERAPY
     Dosage: 6 MG, Q3WK
     Route: 058
     Dates: start: 20111103
  3. DOXORUBICIN HYDROCHLORIDE [Concomitant]

REACTIONS (6)
  - MYALGIA [None]
  - DYSPNOEA [None]
  - MALAISE [None]
  - PALPITATIONS [None]
  - PYREXIA [None]
  - SEPSIS [None]
